FAERS Safety Report 4814672-0 (Version None)
Quarter: 2005Q4

REPORT INFORMATION
  Report Type: 
  Country: None (occurrence: None)
  Receive Date: 20051028
  Receipt Date: 20041214
  Transmission Date: 20060501
  Serious: No
  Sender: FDA-Public Use
  Company Number: US-GLAXOSMITHKLINE-A0537233A

PATIENT
  Age: 57 Year
  Sex: Female

DRUGS (7)
  1. ADVAIR DISKUS 100/50 [Suspect]
     Indication: ASTHMA
     Dosage: 1PUFF TWICE PER DAY
     Route: 055
     Dates: start: 20040401
  2. SINGULAIR [Concomitant]
  3. EFFEXOR [Concomitant]
  4. XANAX [Concomitant]
  5. PREVACID [Concomitant]
  6. RESTASIS [Concomitant]
     Route: 065
  7. ATACAND [Concomitant]
     Route: 065

REACTIONS (2)
  - CHEST PAIN [None]
  - DYSPNOEA [None]
